FAERS Safety Report 8784584 (Version 1)
Quarter: 2012Q4

REPORT INFORMATION
  Report Type: Spontaneous
  Country: US (occurrence: None)
  Receive Date: 20120830
  Receipt Date: 20120830
  Transmission Date: 20130627
  Serious: Yes (Life-Threatening)
  Sender: FDA-Public Use
  Company Number: 2012/130

PATIENT
  Age: 65 Year
  Sex: Male

DRUGS (1)
  1. LEVOFLOXACIN HEMIHYDRATE [Suspect]
     Route: 051

REACTIONS (8)
  - Drug reaction with eosinophilia and systemic symptoms [None]
  - Oesophageal perforation [None]
  - Respiratory distress [None]
  - Metabolic acidosis [None]
  - Stridor [None]
  - Arrhythmia supraventricular [None]
  - Blood creatinine increased [None]
  - Pharyngeal oedema [None]
